FAERS Safety Report 6243806-9 (Version None)
Quarter: 2009Q2

REPORT INFORMATION
  Report Type: 
  Country: None (occurrence: None)
  Receive Date: 20090624
  Receipt Date: 20090612
  Transmission Date: 20091009
  Serious: Yes (Other)
  Sender: FDA-Public Use
  Company Number: PHHY2009GB18068

PATIENT
  Sex: Female

DRUGS (3)
  1. CLOZARIL [Suspect]
     Indication: SCHIZOPHRENIA
     Dosage: UNK
     Dates: start: 19960318, end: 19981201
  2. CLOZARIL [Suspect]
     Dosage: UNK
     Dates: start: 19990105
  3. ALENDRONATE SODIUM [Concomitant]

REACTIONS (2)
  - CASTLEMAN'S DISEASE [None]
  - LOWER RESPIRATORY TRACT INFECTION [None]
